FAERS Safety Report 23409326 (Version 1)
Quarter: 2024Q1

REPORT INFORMATION
  Report Type: Spontaneous
  Country: None (occurrence: FR)
  Receive Date: 20240117
  Receipt Date: 20240117
  Transmission Date: 20240410
  Serious: Yes (Hospitalization)
  Sender: FDA-Public Use
  Company Number: FR-B.Braun Medical Inc.-2151417

PATIENT
  Age: 57 Year
  Sex: Male

DRUGS (12)
  1. ACETAMINOPHEN [Suspect]
     Active Substance: ACETAMINOPHEN
     Indication: Pain
     Route: 042
     Dates: start: 20231130
  2. CEFAZOLIN SODIUM [Suspect]
     Active Substance: CEFAZOLIN SODIUM
  3. CISATRACURIUM [Suspect]
     Active Substance: CISATRACURIUM
  4. TRAMADOL HYDROCHLORIDE [Suspect]
     Active Substance: TRAMADOL HYDROCHLORIDE
  5. DEXAMETHASONE [Suspect]
     Active Substance: DEXAMETHASONE
  6. KETAMINE [Suspect]
     Active Substance: KETAMINE
  7. KETOPROFEN [Suspect]
     Active Substance: KETOPROFEN
  8. BENSERAZIDE HYDROCHLORIDE\LEVODOPA [Suspect]
     Active Substance: BENSERAZIDE HYDROCHLORIDE\LEVODOPA
  9. OXYCODONE. [Suspect]
     Active Substance: OXYCODONE HYDROCHLORIDE
  10. PROPOFOL [Suspect]
     Active Substance: PROPOFOL
  11. SUFENTANIL [Suspect]
     Active Substance: SUFENTANIL
  12. VENLAFAXINE [Suspect]
     Active Substance: VENLAFAXINE HYDROCHLORIDE

REACTIONS (2)
  - Confusion postoperative [None]
  - Postoperative delirium [None]
